FAERS Safety Report 13373167 (Version 2)
Quarter: 2017Q2

REPORT INFORMATION
  Report Type: Spontaneous
  Country: US (occurrence: US)
  Receive Date: 20170327
  Receipt Date: 20170426
  Transmission Date: 20170830
  Serious: No
  Sender: FDA-Public Use
  Company Number: US-GLAXOSMITHKLINE-US2017041802

PATIENT
  Sex: Female

DRUGS (2)
  1. VENTOLIN HFA [Suspect]
     Active Substance: ALBUTEROL SULFATE
     Indication: PRODUCT USED FOR UNKNOWN INDICATION
     Dosage: UNK
     Route: 055
     Dates: start: 20170309, end: 20170316
  2. VENTOLIN HFA [Suspect]
     Active Substance: ALBUTEROL SULFATE
     Dosage: UNK
     Route: 055

REACTIONS (5)
  - Drug effect decreased [Unknown]
  - Product quality issue [Unknown]
  - Wrong technique in product usage process [Unknown]
  - Product use issue [Unknown]
  - Device use error [Unknown]
